FAERS Safety Report 13138450 (Version 1)
Quarter: 2017Q1

REPORT INFORMATION
  Report Type: Spontaneous
  Country: IN (occurrence: IN)
  Receive Date: 20170123
  Receipt Date: 20170123
  Transmission Date: 20170428
  Serious: Yes (Other)
  Sender: FDA-Public Use
  Company Number: IN-SUN PHARMACEUTICAL INDUSTRIES LTD-2017R1-131992

PATIENT
  Age: 31 Year
  Sex: Male

DRUGS (1)
  1. ISOTRETINOIN [Suspect]
     Active Substance: ISOTRETINOIN
     Indication: ACNE CYSTIC
     Dosage: 1 MG/KG, DAILY
     Route: 065

REACTIONS (2)
  - Fibrosis [Not Recovered/Not Resolved]
  - Extraocular muscle disorder [Not Recovered/Not Resolved]
